FAERS Safety Report 5266560-6 (Version None)
Quarter: 2007Q1

REPORT INFORMATION
  Report Type: 
  Country: None (occurrence: None)
  Receive Date: 20070315
  Receipt Date: 20070308
  Transmission Date: 20070707
  Serious: Yes (Other)
  Sender: FDA-Public Use
  Company Number: FR-BOEHRINGER INGELHEIM PHARMACEUTICALS, INC.-2007-FF-00166FF

PATIENT
  Sex: Male
  Weight: 65 kg

DRUGS (2)
  1. SPIRIVA [Suspect]
     Indication: CHRONIC OBSTRUCTIVE PULMONARY DISEASE
     Route: 055
  2. SPIRIVA [Suspect]
     Indication: TRACHEOMALACIA

REACTIONS (4)
  - APTYALISM [None]
  - DRY THROAT [None]
  - DYSPNOEA [None]
  - FLUSHING [None]
